FAERS Safety Report 5395074-8 (Version None)
Quarter: 2007Q3

REPORT INFORMATION
  Report Type: 
  Country: None (occurrence: None)
  Receive Date: 20070724
  Receipt Date: 20070712
  Transmission Date: 20080115
  Serious: Yes (Hospitalization)
  Sender: FDA-Public Use
  Company Number: JP-ELI_LILLY_AND_COMPANY-JP200707004546

PATIENT
  Age: 1 Day
  Sex: Female
  Weight: 1.9 kg

DRUGS (2)
  1. ZYPREXA [Suspect]
     Route: 064
     Dates: start: 20060101, end: 20061209
  2. AKINETON [Concomitant]
     Route: 064
     Dates: start: 20060101, end: 20061110

REACTIONS (2)
  - DRUG EXPOSURE DURING PREGNANCY [None]
  - SMALL FOR DATES BABY [None]
